FAERS Safety Report 6125190-4 (Version None)
Quarter: 2009Q1

REPORT INFORMATION
  Report Type: 
  Country: None (occurrence: None)
  Receive Date: 20090317
  Receipt Date: 20090309
  Transmission Date: 20090719
  Serious: Yes (Other)
  Sender: FDA-Public Use
  Company Number: CHPA2009US06304

PATIENT
  Age: 79 Year
  Sex: Male

DRUGS (1)
  1. GAS-X EXTRA STRENGTH SOFTGELS (NCH) (SIMETHICONE) SOFT GELATIN CAPSULE [Suspect]
     Indication: FLATULENCE
     Dosage: 500 MG, ONCE/SINGLE, ORAL
     Route: 048
     Dates: start: 20090309, end: 20090309

REACTIONS (2)
  - AMNESIA [None]
  - INCORRECT DOSE ADMINISTERED [None]
